FAERS Safety Report 12077745 (Version 3)
Quarter: 2016Q1

REPORT INFORMATION
  Report Type: Report from Study
  Country: CA (occurrence: CA)
  Receive Date: 20160215
  Receipt Date: 20160226
  Transmission Date: 20160526
  Serious: Yes (Life-Threatening, Other)
  Sender: FDA-Public Use
  Company Number: PHHY2016CA002589

PATIENT
  Age: 41 Year
  Sex: Female

DRUGS (1)
  1. COSENTYX [Suspect]
     Active Substance: SECUKINUMAB
     Indication: PSORIASIS
     Dosage: 300 MG, QMO
     Route: 058
     Dates: start: 20151106

REACTIONS (11)
  - Pneumonia [Recovered/Resolved]
  - Vomiting [Unknown]
  - Dyspnoea [Unknown]
  - Feeling abnormal [Unknown]
  - Cough [Unknown]
  - Pruritus [Unknown]
  - Varicella [Unknown]
  - Malaise [Unknown]
  - Pulmonary congestion [Unknown]
  - Drug effect incomplete [Unknown]
  - Diarrhoea [Unknown]

NARRATIVE: CASE EVENT DATE: 2015
